FAERS Safety Report 8339967-8 (Version None)
Quarter: 2012Q2

REPORT INFORMATION
  Report Type: 
  Country: None (occurrence: None)
  Receive Date: 20120502
  Receipt Date: 20120502
  Transmission Date: 20120825
  Serious: No
  Sender: FDA-Public Use
  Company Number: None

PATIENT
  Sex: Female
  Weight: 102.3 kg

DRUGS (2)
  1. OXYCONTIN 20MG PURDUE PHARMA  20MG BID 047 [Suspect]
     Indication: ENDOMETRIOSIS
     Dosage: 20MG BID 047
     Dates: start: 20120424, end: 20120426
  2. OXYCONTIN 20MG PURDUE PHARMA  20MG BID 047 [Suspect]
     Indication: PAIN
     Dosage: 20MG BID 047
     Dates: start: 20120424, end: 20120426

REACTIONS (2)
  - PRODUCT SOLUBILITY ABNORMAL [None]
  - INADEQUATE ANALGESIA [None]
